FAERS Safety Report 8887173 (Version 1)
Quarter: 2012Q4

REPORT INFORMATION
  Report Type: 
  Country: US (occurrence: US)
  Receive Date: 20121105
  Receipt Date: 20121105
  Transmission Date: 20130627
  Serious: Yes (Other)
  Sender: FDA-Public Use
  Company Number: US-PFIZER INC-2012274733

PATIENT
  Age: 75 Year
  Sex: Male
  Weight: 100 kg

DRUGS (1)
  1. LYRICA [Suspect]
     Indication: NEUROPATHY
     Dosage: 100 mg, 2x/day
     Dates: end: 201210

REACTIONS (4)
  - Compression fracture [Unknown]
  - Drug ineffective [Unknown]
  - Fall [Unknown]
  - Malaise [Recovering/Resolving]
